FAERS Safety Report 24134151 (Version 1)
Quarter: 2024Q3

REPORT INFORMATION
  Report Type: Spontaneous
  Country: US (occurrence: US)
  Receive Date: 20240724
  Receipt Date: 20240724
  Transmission Date: 20241017
  Serious: Yes (Hospitalization, Other)
  Sender: DR REDDYS
  Company Number: US-DRL-USA-LIT/USA/24/0010631

PATIENT
  Age: 42 Year
  Sex: Female

DRUGS (10)
  1. NORTRIPTYLINE [Suspect]
     Active Substance: NORTRIPTYLINE
     Indication: Major depression
  2. NORTRIPTYLINE [Suspect]
     Active Substance: NORTRIPTYLINE
  3. NORTRIPTYLINE [Suspect]
     Active Substance: NORTRIPTYLINE
  4. DULOXETINE [Suspect]
     Active Substance: DULOXETINE
     Indication: Pain
  5. DULOXETINE [Suspect]
     Active Substance: DULOXETINE
  6. BUSPIRONE [Suspect]
     Active Substance: BUSPIRONE HYDROCHLORIDE
     Indication: Anxiety
  7. METOCLOPRAMIDE [Suspect]
     Active Substance: METOCLOPRAMIDE
     Indication: Nausea
  8. METOCLOPRAMIDE [Suspect]
     Active Substance: METOCLOPRAMIDE
     Indication: Vomiting
     Route: 042
  9. LORAZEPAM [Concomitant]
     Active Substance: LORAZEPAM
     Indication: Anxiety
     Route: 060
  10. LORAZEPAM [Concomitant]
     Active Substance: LORAZEPAM
     Indication: Agitation

REACTIONS (5)
  - Serotonin syndrome [Unknown]
  - Extrapyramidal disorder [Recovering/Resolving]
  - Multiple drug therapy [Unknown]
  - Dystonia [Recovering/Resolving]
  - Drug interaction [Unknown]
